FAERS Safety Report 20482666 (Version 2)
Quarter: 2022Q1

REPORT INFORMATION
  Report Type: Report from Study
  Country: AR (occurrence: AR)
  Receive Date: 20220217
  Receipt Date: 20220303
  Transmission Date: 20220423
  Serious: Yes (Hospitalization, Other)
  Sender: FDA-Public Use
  Company Number: AR-NOVARTISPH-NVSC2022AR033204

PATIENT
  Age: 89 Year
  Sex: Female

DRUGS (5)
  1. DIOVAN [Suspect]
     Active Substance: VALSARTAN
     Indication: Blood pressure fluctuation
     Dosage: 160 MG, QD
     Route: 065
     Dates: start: 2007
  2. DIOVAN [Suspect]
     Active Substance: VALSARTAN
     Dosage: 160 MG, QD
     Route: 065
     Dates: start: 2007
  3. PANTUS [Concomitant]
     Indication: Abdominal discomfort
     Dosage: 20 (UNITS NOT PROVIDED)
     Route: 065
  4. AMPLIAR [Concomitant]
     Indication: Blood cholesterol
     Dosage: 1 DOSAGE FORM, QD (AT NIGHT)
     Route: 065
  5. VITAMIN D [Concomitant]
     Active Substance: VITAMIN D NOS
     Indication: Skin discomfort
     Dosage: UNK
     Route: 065

REACTIONS (16)
  - Hip fracture [Recovering/Resolving]
  - Gait inability [Recovering/Resolving]
  - Fall [Unknown]
  - Neoplasm malignant [Unknown]
  - Blood pressure decreased [Unknown]
  - Bone erosion [Unknown]
  - Eye irritation [Unknown]
  - Meniscus injury [Unknown]
  - Blood pressure fluctuation [Unknown]
  - Arthralgia [Unknown]
  - Fatigue [Unknown]
  - Wrist fracture [Unknown]
  - Musculoskeletal discomfort [Unknown]
  - Gait disturbance [Unknown]
  - Dyspepsia [Unknown]
  - Limb discomfort [Unknown]

NARRATIVE: CASE EVENT DATE: 20211223
